FAERS Safety Report 14640838 (Version 3)
Quarter: 2018Q2

REPORT INFORMATION
  Report Type: Spontaneous
  Country: CZ (occurrence: CZ)
  Receive Date: 20180315
  Receipt Date: 20180524
  Transmission Date: 20180711
  Serious: Yes (Other)
  Sender: FDA-Public Use
  Company Number: CZ-ELI_LILLY_AND_COMPANY-CZ201803002323

PATIENT
  Age: 57 Year
  Sex: Female

DRUGS (4)
  1. GEMCITABINE HYDROCHLORIDE. [Suspect]
     Active Substance: GEMCITABINE HYDROCHLORIDE
     Indication: LUNG CARCINOMA CELL TYPE UNSPECIFIED STAGE IV
     Dosage: UNK UNK, UNKNOWN
     Route: 065
     Dates: start: 200710
  2. CARBOPLATINA [Suspect]
     Active Substance: CARBOPLATIN
     Indication: LUNG CARCINOMA CELL TYPE UNSPECIFIED STAGE IV
     Dosage: UNK, UNKNOWN
     Route: 065
     Dates: start: 200710
  3. PACLITAXEL. [Suspect]
     Active Substance: PACLITAXEL
     Indication: LUNG CARCINOMA CELL TYPE UNSPECIFIED STAGE IV
     Dosage: UNK, UNKNOWN
     Route: 065
  4. CARBOPLATINA [Suspect]
     Active Substance: CARBOPLATIN
     Dosage: UNK, CYCLICAL
     Route: 065
     Dates: start: 201003, end: 201008

REACTIONS (3)
  - Haematotoxicity [Unknown]
  - Lung carcinoma cell type unspecified recurrent [Unknown]
  - Drug effect incomplete [Unknown]

NARRATIVE: CASE EVENT DATE: 201003
